FAERS Safety Report 4723337-5 (Version None)
Quarter: 2005Q3

REPORT INFORMATION
  Report Type: 
  Country: None (occurrence: None)
  Receive Date: 20050725
  Receipt Date: 20050420
  Transmission Date: 20060218
  Serious: Yes (Hospitalization)
  Sender: FDA-Public Use
  Company Number: US-BOEHRINGER INGELHEIM PHARMACEUTICALS, INC.-2005-BP-06485BP

PATIENT
  Sex: Female

DRUGS (2)
  1. CATAPRES-TTS-1 [Suspect]
     Indication: HYPERTENSION
     Route: 061
  2. NIFEDIPINE [Concomitant]

REACTIONS (4)
  - CARDIAC DISORDER [None]
  - CARDIOMYOPATHY [None]
  - CONSTIPATION [None]
  - MYOCARDIAL INFARCTION [None]
